FAERS Safety Report 9433180 (Version 1)
Quarter: 2013Q3

REPORT INFORMATION
  Report Type: Spontaneous
  Country: BR (occurrence: BR)
  Receive Date: 20130731
  Receipt Date: 20130731
  Transmission Date: 20140515
  Serious: Yes (Hospitalization, Disabling)
  Sender: FDA-Public Use
  Company Number: BR-GLAXOSMITHKLINE-A1035498A

PATIENT
  Sex: Male

DRUGS (1)
  1. COMBODART [Suspect]
     Indication: PRODUCT USED FOR UNKNOWN INDICATION
     Dosage: 1CAP PER DAY
     Route: 048
     Dates: start: 20130719, end: 20130720

REACTIONS (4)
  - Cerebrovascular accident [Not Recovered/Not Resolved]
  - Hypotension [Recovered/Resolved]
  - Hypertension [Unknown]
  - Akinesia [Not Recovered/Not Resolved]
